FAERS Safety Report 4951780-8 (Version None)
Quarter: 2006Q1

REPORT INFORMATION
  Report Type: 
  Country: None (occurrence: None)
  Receive Date: 20060323
  Receipt Date: 20060124
  Transmission Date: 20060701
  Serious: Yes (Other)
  Sender: FDA-Public Use
  Company Number: 2006SE01043

PATIENT
  Age: 865 Month
  Sex: Female
  Weight: 70 kg

DRUGS (8)
  1. SEROQUEL [Suspect]
     Indication: DEPRESSION
     Route: 048
     Dates: start: 20051101, end: 20060101
  2. SEROQUEL [Suspect]
     Route: 048
     Dates: start: 20060101
  3. REMERON [Concomitant]
  4. FEMAGAN [Concomitant]
  5. GABAPENTIN [Concomitant]
  6. BAKLOFEN [Concomitant]
     Dates: start: 20050801
  7. PREDNISOLONE [Concomitant]
     Indication: POLYMYALGIA
  8. SALAZOPYRIN [Concomitant]
     Indication: POLYMYALGIA

REACTIONS (3)
  - DIPLOPIA [None]
  - RETINAL OEDEMA [None]
  - VISION BLURRED [None]
